FAERS Safety Report 13963306 (Version 2)
Quarter: 2017Q4

REPORT INFORMATION
  Report Type: Spontaneous
  Country: US (occurrence: US)
  Receive Date: 20170913
  Receipt Date: 20171218
  Transmission Date: 20180320
  Serious: No
  Sender: FDA-Public Use
  Company Number: US-GLAXOSMITHKLINE-US2017139805

PATIENT
  Sex: Male

DRUGS (5)
  1. VENTOLIN HFA [Suspect]
     Active Substance: ALBUTEROL SULFATE
     Dosage: UNK
  2. PRISTIQ EXTENDED-RELEASE [Concomitant]
     Active Substance: DESVENLAFAXINE SUCCINATE
  3. VENTOLIN HFA [Suspect]
     Active Substance: ALBUTEROL SULFATE
     Indication: CHRONIC OBSTRUCTIVE PULMONARY DISEASE
     Dosage: 2 PUFF(S), BID
     Route: 055
  4. CELEBREX [Concomitant]
     Active Substance: CELECOXIB
  5. LYRICA [Concomitant]
     Active Substance: PREGABALIN

REACTIONS (3)
  - Dyspnoea [Recovering/Resolving]
  - Drug dose omission [Unknown]
  - Product use in unapproved indication [Unknown]
